FAERS Safety Report 19649640 (Version 3)
Quarter: 2021Q3

REPORT INFORMATION
  Report Type: Spontaneous
  Country: US (occurrence: US)
  Receive Date: 20210802
  Receipt Date: 20210910
  Transmission Date: 20211014
  Serious: Yes (Other)
  Sender: FDA-Public Use
  Company Number: NVSC2021US165165

PATIENT
  Age: 73 Year
  Sex: Female

DRUGS (12)
  1. SIMBRINZA [Suspect]
     Active Substance: BRIMONIDINE TARTRATE\BRINZOLAMIDE
     Dosage: 1 DRP, BID
     Route: 065
     Dates: start: 20210316, end: 20210615
  2. CIPROFLOXACIN. [Concomitant]
     Active Substance: CIPROFLOXACIN
     Indication: PRODUCT USED FOR UNKNOWN INDICATION
     Dosage: UNK(1 GTT OS QAM)
     Route: 065
  3. PROLENSA [Concomitant]
     Active Substance: BROMFENAC SODIUM
     Indication: PRODUCT USED FOR UNKNOWN INDICATION
     Dosage: UNK UNK, QD (1 GTT QAM)
     Route: 065
  4. PRAVASTATIN. [Concomitant]
     Active Substance: PRAVASTATIN
     Indication: BLOOD CHOLESTEROL INCREASED
     Dosage: 40 MG, QD
     Route: 065
  5. LUMIGAN [Suspect]
     Active Substance: BIMATOPROST
     Indication: PRODUCT USED FOR UNKNOWN INDICATION
     Dosage: UNK
     Route: 065
  6. CIPROFLOXACIN. [Concomitant]
     Active Substance: CIPROFLOXACIN
     Dosage: UNK (1 GTT OD QID)
     Route: 065
  7. PROLENSA [Concomitant]
     Active Substance: BROMFENAC SODIUM
     Dosage: UNK, (QAM OD)
     Route: 065
  8. PREDNISOLONE. [Concomitant]
     Active Substance: PREDNISOLONE
     Indication: PRODUCT USED FOR UNKNOWN INDICATION
     Dosage: UNK, QID
     Route: 065
  9. SIMBRINZA [Suspect]
     Active Substance: BRIMONIDINE TARTRATE\BRINZOLAMIDE
     Indication: GLAUCOMA
     Dosage: (1%?0.2 %)
     Route: 065
  10. ARTIFICIAL TEARS [Concomitant]
     Active Substance: GLYCERIN\HYPROMELLOSES\POLYETHYLENE GLYCOL 400
     Indication: PRODUCT USED FOR UNKNOWN INDICATION
     Dosage: UNK UNK, PRN (1 GTT OU)
     Route: 065
  11. PREDNISOLONE. [Concomitant]
     Active Substance: PREDNISOLONE
     Dosage: UNK, QID (OD)
     Route: 065
  12. PROLENSA [Concomitant]
     Active Substance: BROMFENAC SODIUM
     Dosage: UNK (1 GTT OS QAM)
     Route: 065

REACTIONS (14)
  - Corneal oedema [Unknown]
  - Eye pain [Unknown]
  - Dry eye [Unknown]
  - Intraocular pressure decreased [Unknown]
  - Eye irritation [Unknown]
  - Eye haemorrhage [Recovered/Resolved]
  - Drug intolerance [Unknown]
  - Open angle glaucoma [Unknown]
  - Stomatitis [Recovered/Resolved]
  - Dermatitis allergic [Unknown]
  - Ocular hyperaemia [Unknown]
  - Vision blurred [Unknown]
  - Eye allergy [Unknown]
  - Pinguecula [Unknown]

NARRATIVE: CASE EVENT DATE: 20210603
